FAERS Safety Report 9079085 (Version 2)
Quarter: 2013Q1

REPORT INFORMATION
  Report Type: Spontaneous
  Country: US (occurrence: US)
  Receive Date: 20130215
  Receipt Date: 20130225
  Transmission Date: 20140127
  Serious: Yes (Hospitalization, Other)
  Sender: FDA-Public Use
  Company Number: US-AMGEN-USASP2013009587

PATIENT
  Age: 78 Year
  Sex: Male

DRUGS (3)
  1. ENBREL [Suspect]
     Indication: RHEUMATOID ARTHRITIS
     Dosage: 50 MG, QWK
     Dates: start: 20051202
  2. METHOTREXATE [Concomitant]
     Dosage: UNK, 6 TO 12 MG
  3. PRAVASTATIN [Concomitant]
     Dosage: UNK

REACTIONS (12)
  - Coronary artery occlusion [Recovered/Resolved]
  - Muscular weakness [Not Recovered/Not Resolved]
  - Femur fracture [Not Recovered/Not Resolved]
  - Venous occlusion [Recovered/Resolved]
  - Depression [Recovered/Resolved]
  - Paraesthesia [Recovered/Resolved]
  - Balance disorder [Not Recovered/Not Resolved]
  - Thyroid disorder [Unknown]
  - Breast enlargement [Unknown]
  - Nervous system disorder [Not Recovered/Not Resolved]
  - Memory impairment [Not Recovered/Not Resolved]
  - Surgery [Unknown]
